FAERS Safety Report 6480417-4 (Version None)
Quarter: 2009Q4

REPORT INFORMATION
  Report Type: 
  Country: None (occurrence: None)
  Receive Date: 20091208
  Receipt Date: 20091130
  Transmission Date: 20100525
  Serious: Yes (Hospitalization)
  Sender: FDA-Public Use
  Company Number: CHNY2009JP03171

PATIENT
  Age: 67 Year
  Sex: Male

DRUGS (1)
  1. SLOW-FE (NCH) [Suspect]
     Indication: MINERAL SUPPLEMENTATION
     Dosage: 200 MG, QD
     Route: 048
     Dates: start: 20090805, end: 20090810

REACTIONS (2)
  - BLOOD DISORDER [None]
  - PROSTATECTOMY [None]
